FAERS Safety Report 24716248 (Version 1)
Quarter: 2024Q4

REPORT INFORMATION
  Report Type: Report from Study
  Country: NL (occurrence: NL)
  Receive Date: 20241210
  Receipt Date: 20241210
  Transmission Date: 20250114
  Serious: Yes (Other)
  Sender: ABBVIE
  Company Number: NL-ABBVIE-6036352

PATIENT
  Age: 71 Year
  Sex: Male

DRUGS (6)
  1. FOSCARBIDOPA\FOSLEVODOPA [Suspect]
     Active Substance: FOSCARBIDOPA\FOSLEVODOPA
     Indication: Parkinson^s disease
     Dosage: LAST ADMIN DATE: 2024
     Route: 058
     Dates: start: 20240402
  2. FOSCARBIDOPA\FOSLEVODOPA [Suspect]
     Active Substance: FOSCARBIDOPA\FOSLEVODOPA
     Dosage: LOADING DOSE:.60 ML, BASE INFUSION RATE:0.35 ML/H, HIGH INFUSION RATE:0.32 ML/H, LOW INFUSION RAT...
     Route: 058
     Dates: start: 20240627, end: 20240627
  3. FOSCARBIDOPA\FOSLEVODOPA [Suspect]
     Active Substance: FOSCARBIDOPA\FOSLEVODOPA
     Dosage: LOADING DOSE:.60 ML, BASE INFUSION RATE:0.35 ML/H, HIGH INFUSION RATE:0.32 ML/H, LOW INFUSION RAT...
     Route: 058
     Dates: start: 20240723, end: 20240723
  4. FOSCARBIDOPA\FOSLEVODOPA [Suspect]
     Active Substance: FOSCARBIDOPA\FOSLEVODOPA
     Dosage: THERAPY DURATION: REMAINS AT 24 HRS
     Route: 058
     Dates: start: 20240912, end: 20240912
  5. FOSCARBIDOPA\FOSLEVODOPA [Suspect]
     Active Substance: FOSCARBIDOPA\FOSLEVODOPA
     Dosage: LOADING DOSE:.60 ML, BASE INFUSION RATE:0.35 ML/H, HIGH INFUSION RATE:0.35 ML/H, LOW INFUSION RAT...
     Route: 058
     Dates: start: 20240925, end: 20240925
  6. FOSCARBIDOPA\FOSLEVODOPA [Suspect]
     Active Substance: FOSCARBIDOPA\FOSLEVODOPA
     Dosage: LOADING DOSE:.60 ML, BASE INFUSION RATE:0.35 ML/H, LOW INFUSION RATE:0.17 ML/H, EXTRA DOSAGE: 0.2...
     Route: 058
     Dates: start: 20241128, end: 20241128

REACTIONS (8)
  - Syncope [Recovered/Resolved]
  - Dyskinesia [Not Recovered/Not Resolved]
  - Balance disorder [Recovering/Resolving]
  - Eye discharge [Not Recovered/Not Resolved]
  - Rash papular [Not Recovered/Not Resolved]
  - Freezing phenomenon [Not Recovered/Not Resolved]
  - Contusion [Not Recovered/Not Resolved]
  - Stress [Not Recovered/Not Resolved]

NARRATIVE: CASE EVENT DATE: 20240101
